FAERS Safety Report 7977326-8 (Version None)
Quarter: 2011Q4

REPORT INFORMATION
  Report Type: 
  Country: None (occurrence: None)
  Receive Date: 20111213
  Receipt Date: 20050131
  Transmission Date: 20120403
  Serious: Yes (Other)
  Sender: FDA-Public Use
  Company Number: PHHY2005CL007076

PATIENT
  Age: 59 Year
  Sex: Female

DRUGS (1)
  1. MIACALCIN [Suspect]

REACTIONS (5)
  - HIP FRACTURE [None]
  - FRACTURE [None]
  - UPPER LIMB FRACTURE [None]
  - ANKLE FRACTURE [None]
  - FOOT FRACTURE [None]
